FAERS Safety Report 8894984 (Version 3)
Quarter: 2012Q4

REPORT INFORMATION
  Report Type: 
  Country: US (occurrence: US)
  Receive Date: 20121108
  Receipt Date: 20121204
  Transmission Date: 20130627
  Serious: Yes (Hospitalization)
  Sender: FDA-Public Use
  Company Number: US-BAXTER-2012BAX022343

PATIENT
  Sex: Female
  Weight: 89 kg

DRUGS (5)
  1. DIANEAL LOW CALCIUM [Suspect]
     Indication: END STAGE RENAL DISEASE (ESRD)
     Route: 033
     Dates: start: 20120711
  2. DIANEAL LOW CALCIUM [Suspect]
     Indication: END STAGE RENAL DISEASE (ESRD)
     Route: 033
     Dates: start: 20120711
  3. DIANEAL LOW CALCIUM [Suspect]
     Indication: END STAGE RENAL DISEASE (ESRD)
     Route: 033
     Dates: start: 20120711
  4. DIANEAL LOW CALCIUM (ULTRABAG) [Suspect]
     Indication: END STAGE RENAL DISEASE (ESRD)
     Route: 033
  5. DIANEAL LOW CALCIUM (ULTRABAG) [Suspect]
     Indication: END STAGE RENAL DISEASE (ESRD)
     Route: 033

REACTIONS (3)
  - Gastritis [Recovering/Resolving]
  - Gastrointestinal haemorrhage [Recovering/Resolving]
  - Malaise [Unknown]
